FAERS Safety Report 20247162 (Version 3)
Quarter: 2022Q1

REPORT INFORMATION
  Report Type: Spontaneous
  Country: CZ (occurrence: CZ)
  Receive Date: 20211229
  Receipt Date: 20220112
  Transmission Date: 20220423
  Serious: Yes (Other)
  Sender: FDA-Public Use
  Company Number: CZ-Merck Healthcare KGaA-9282366

PATIENT
  Age: 73 Year
  Sex: Male

DRUGS (8)
  1. METFORMIN [Suspect]
     Active Substance: METFORMIN HYDROCHLORIDE
     Indication: Type 2 diabetes mellitus
     Dosage: 850 MILLIGRAM
  2. METFORMIN [Suspect]
     Active Substance: METFORMIN HYDROCHLORIDE
     Dosage: 1700 MILLIGRAM, QD
     Route: 065
  3. METOPROLOL [Suspect]
     Active Substance: METOPROLOL
     Indication: Hypertension
     Dosage: 100 MILLIGRAM, QD
  4. ATORVASTATIN [Suspect]
     Active Substance: ATORVASTATIN
     Indication: Dyslipidaemia
     Dosage: 10 MILLIGRAM, QD
  5. INDAPAMIDE\PERINDOPRIL [Suspect]
     Active Substance: INDAPAMIDE\PERINDOPRIL
     Indication: Hypertension
     Dosage: UNK, QD, DOSAGE-5/1.25 MG 1-0-0
  6. WARFARIN [Suspect]
     Active Substance: WARFARIN
     Indication: Sinus arrhythmia
     Dosage: 10 MILLIGRAM, QD, FOR ATLEAST 3 YEARS
  7. WARFARIN [Suspect]
     Active Substance: WARFARIN
     Indication: Atrial fibrillation
  8. LINAGLIPTIN [Suspect]
     Active Substance: LINAGLIPTIN
     Indication: Type 2 diabetes mellitus
     Dosage: 5 MILLIGRAM, QD

REACTIONS (16)
  - Melaena [Unknown]
  - Nephropathy toxic [Unknown]
  - Diabetic nephropathy [Unknown]
  - Anaemia [Unknown]
  - Metabolic acidosis [Unknown]
  - Blood lactic acid increased [Unknown]
  - Blood creatinine increased [Unknown]
  - International normalised ratio increased [Unknown]
  - Proteinuria [Unknown]
  - Abdominal pain upper [Unknown]
  - Heart rate irregular [Unknown]
  - Dyspnoea [Unknown]
  - Haematuria [Unknown]
  - Blood pressure decreased [Unknown]
  - Asthenia [Unknown]
  - Nephropathy [Unknown]

NARRATIVE: CASE EVENT DATE: 20201101
